FAERS Safety Report 7865786-2 (Version None)
Quarter: 2011Q4

REPORT INFORMATION
  Report Type: 
  Country: None (occurrence: None)
  Receive Date: 20111028
  Receipt Date: 20110222
  Transmission Date: 20120403
  Serious: No
  Sender: FDA-Public Use
  Company Number: US-GLAXOSMITHKLINE-A0914907A

PATIENT
  Age: 66 Year
  Sex: Male

DRUGS (8)
  1. SIMVASTATIN [Concomitant]
  2. HYDROCHLOROTHIAZIDE [Concomitant]
  3. ZOLPIDEM [Concomitant]
  4. ENALAPRIL MALEATE [Concomitant]
  5. METOPROLOL TARTRATE [Concomitant]
  6. GLIPIZIDE [Concomitant]
  7. ADVAIR DISKUS 100/50 [Suspect]
     Indication: ASTHMA
     Dosage: 1PUFF AS REQUIRED
     Route: 055
     Dates: start: 20101201
  8. FLUOXETINE HCL [Concomitant]

REACTIONS (1)
  - DYSPHONIA [None]
